FAERS Safety Report 11144350 (Version 1)
Quarter: 2015Q2

REPORT INFORMATION
  Report Type: Spontaneous
  Country: US (occurrence: None)
  Receive Date: 20150526
  Receipt Date: 20150526
  Transmission Date: 20150821
  Serious: Yes (Disabling)
  Sender: FDA-Public Use
  Company Number: None

PATIENT
  Age: 65 Year
  Sex: Female
  Weight: 70.31 kg

DRUGS (9)
  1. FLUOXETINE HCL [Concomitant]
     Active Substance: FLUOXETINE HYDROCHLORIDE
  2. RALOXIFENE HCL [Suspect]
     Active Substance: RALOXIFENE
     Indication: OSTEOPOROSIS
     Dosage: 1 TABLET DAILY ONCE DAILY TAKEN BY MOUTH
     Route: 048
     Dates: start: 20150514, end: 20150518
  3. CENTRUM WOMEN^S 50+ [Concomitant]
  4. CALCIUM CITRATE WITH VITAMIN D AND MAGNESIUM [Concomitant]
  5. ACEBUTOLOL [Concomitant]
     Active Substance: ACEBUTOLOL
  6. ASPIRIN. [Concomitant]
     Active Substance: ASPIRIN
  7. RALOXIFENE HCL [Suspect]
     Active Substance: RALOXIFENE
     Indication: OSTEOPENIA
     Dosage: 1 TABLET DAILY ONCE DAILY TAKEN BY MOUTH
     Route: 048
     Dates: start: 20150514, end: 20150518
  8. COENZYME Q10 [Concomitant]
     Active Substance: UBIDECARENONE
  9. HAIR, SKINA AND NAILS GUMMIES WITH VITAMINS C + E AND BIOTIN [Concomitant]

REACTIONS (2)
  - Middle insomnia [None]
  - Toothache [None]

NARRATIVE: CASE EVENT DATE: 20150515
